FAERS Safety Report 4754143-3 (Version None)
Quarter: 2005Q3

REPORT INFORMATION
  Report Type: 
  Country: None (occurrence: None)
  Receive Date: 20050826
  Receipt Date: 19970916
  Transmission Date: 20060218
  Serious: Yes (Other)
  Sender: FDA-Public Use
  Company Number: JP-ABBOTT-05P-087-0306542-00

PATIENT
  Age: 0 Year
  Sex: Male

DRUGS (7)
  1. ERYTHROCIN [Suspect]
     Indication: RESPIRATORY DISORDER
     Route: 048
     Dates: start: 19970808, end: 19970817
  2. AMBROXOL HYDROCHLORIDE [Suspect]
     Indication: SPUTUM RETENTION
     Route: 048
     Dates: start: 19970807, end: 19970817
  3. SPUTUM EXCRETION [Concomitant]
     Indication: BRONCHOSPASM
     Route: 048
     Dates: start: 19970811, end: 19970817
  4. POTASSIUM PHOSPHATE DIBASIC [Concomitant]
     Indication: RICKETTSIOSIS
     Route: 048
     Dates: start: 19970813, end: 19970817
  5. POTASSIUM PHOSPHATE DIBASIC [Concomitant]
     Indication: PROPHYLAXIS
  6. EPOETIN ALFA [Concomitant]
     Indication: ANAEMIA NEONATAL
     Route: 058
     Dates: start: 19970811, end: 19970814
  7. IPRATROPIUM BROMIDE [Concomitant]
     Indication: RESPIRATORY DISORDER
     Route: 055
     Dates: start: 19970809

REACTIONS (2)
  - HAEMOLYTIC ANAEMIA [None]
  - OXYGEN SATURATION DECREASED [None]
